FAERS Safety Report 5225743-1 (Version None)
Quarter: 2007Q1

REPORT INFORMATION
  Report Type: 
  Country: None (occurrence: None)
  Receive Date: 20070131
  Receipt Date: 20070131
  Transmission Date: 20070707
  Serious: Yes (Hospitalization)
  Sender: FDA-Public Use
  Company Number: None

PATIENT
  Sex: Male
  Weight: 59.8748 kg

DRUGS (10)
  1. DOCETAXEL [Suspect]
     Indication: RECURRENT CANCER
     Dosage: 40 MG/M2 WEEKS 1 AND 2 THEN REST A WEEK IV INFUSION
     Route: 042
     Dates: start: 20070111
  2. DOCETAXEL [Suspect]
     Indication: SQUAMOUS CELL CARCINOMA
     Dosage: 40 MG/M2 WEEKS 1 AND 2 THEN REST A WEEK IV INFUSION
     Route: 042
     Dates: start: 20070111
  3. DOCETAXEL [Suspect]
     Indication: RECURRENT CANCER
     Dosage: 40 MG/M2 WEEKS 1 AND 2 THEN REST A WEEK IV INFUSION
     Route: 042
     Dates: start: 20070122
  4. DOCETAXEL [Suspect]
     Indication: SQUAMOUS CELL CARCINOMA
     Dosage: 40 MG/M2 WEEKS 1 AND 2 THEN REST A WEEK IV INFUSION
     Route: 042
     Dates: start: 20070122
  5. BORTEZOMIB [Suspect]
     Indication: RECURRENT CANCER
     Dosage: 1.6 MG/M2 SAME AS #1 IV BOLUS
     Route: 040
     Dates: start: 20070104
  6. BORTEZOMIB [Suspect]
     Indication: SQUAMOUS CELL CARCINOMA
     Dosage: 1.6 MG/M2 SAME AS #1 IV BOLUS
     Route: 040
     Dates: start: 20070104
  7. BORTEZOMIB [Suspect]
     Indication: RECURRENT CANCER
     Dosage: 1.6 MG/M2 SAME AS #1 IV BOLUS
     Route: 040
     Dates: start: 20070111
  8. BORTEZOMIB [Suspect]
     Indication: SQUAMOUS CELL CARCINOMA
     Dosage: 1.6 MG/M2 SAME AS #1 IV BOLUS
     Route: 040
     Dates: start: 20070111
  9. BORTEZOMIB [Suspect]
     Indication: RECURRENT CANCER
     Dosage: 1.6 MG/M2 SAME AS #1 IV BOLUS
     Route: 040
     Dates: start: 20070122
  10. BORTEZOMIB [Suspect]
     Indication: SQUAMOUS CELL CARCINOMA
     Dosage: 1.6 MG/M2 SAME AS #1 IV BOLUS
     Route: 040
     Dates: start: 20070122

REACTIONS (3)
  - JUGULAR VEIN THROMBOSIS [None]
  - PHARYNGEAL HAEMORRHAGE [None]
  - SUBCLAVIAN VEIN THROMBOSIS [None]
